FAERS Safety Report 12345591 (Version 2)
Quarter: 2016Q3

REPORT INFORMATION
  Report Type: Spontaneous
  Country: US (occurrence: US)
  Receive Date: 20160509
  Receipt Date: 20160819
  Transmission Date: 20161109
  Serious: No
  Sender: FDA-Public Use
  Company Number: US-AMGEN-USASP2016049596

PATIENT
  Age: 68 Year
  Sex: Female

DRUGS (1)
  1. ENBREL [Suspect]
     Active Substance: ETANERCEPT
     Indication: RHEUMATOID ARTHRITIS
     Dosage: 50 MG, QWK
     Route: 065
     Dates: start: 2016

REACTIONS (7)
  - Respiratory tract congestion [Unknown]
  - Pyrexia [Unknown]
  - Hyperhidrosis [Unknown]
  - Cough [Unknown]
  - Drug dose omission [Unknown]
  - Malaise [Unknown]
  - Bronchitis [Unknown]

NARRATIVE: CASE EVENT DATE: 2016
